FAERS Safety Report 6836398-4 (Version None)
Quarter: 2010Q3

REPORT INFORMATION
  Report Type: 
  Country: None (occurrence: None)
  Receive Date: 20100712
  Receipt Date: 20100712
  Transmission Date: 20110219
  Serious: Yes (Hospitalization)
  Sender: FDA-Public Use
  Company Number: None

PATIENT
  Age: 17 Year
  Sex: Male
  Weight: 111 kg

DRUGS (5)
  1. ZYPREXA [Suspect]
     Indication: SCHIZOAFFECTIVE DISORDER
     Dosage: 20 MG QHS PO
     Route: 048
     Dates: start: 20100416, end: 20100426
  2. ZOLOFT [Concomitant]
  3. KLONOPIN [Concomitant]
  4. DEPAKOTE [Concomitant]
  5. TRAZODONE HYDROCHLORIDE [Concomitant]

REACTIONS (3)
  - CONJUNCTIVAL HYPERAEMIA [None]
  - DIABETIC HYPEROSMOLAR COMA [None]
  - TREMOR [None]
